FAERS Safety Report 21255984 (Version 5)
Quarter: 2022Q3

REPORT INFORMATION
  Report Type: Report from Study
  Country: US (occurrence: US)
  Receive Date: 20220825
  Receipt Date: 20220927
  Transmission Date: 20221027
  Serious: Yes (Hospitalization, Other)
  Sender: FDA-Public Use
  Company Number: US-ABBVIE-22K-163-4516212-00

PATIENT
  Age: 85 Year
  Sex: Male

DRUGS (2)
  1. DUOPA [Suspect]
     Active Substance: CARBIDOPA\LEVODOPA
     Indication: Product used for unknown indication
     Route: 050
     Dates: start: 20210713
  2. DUOPA [Suspect]
     Active Substance: CARBIDOPA\LEVODOPA

REACTIONS (4)
  - Haemorrhage urinary tract [Not Recovered/Not Resolved]
  - Weight decreased [Unknown]
  - Device occlusion [Not Recovered/Not Resolved]
  - Rehabilitation therapy [Not Recovered/Not Resolved]

NARRATIVE: CASE EVENT DATE: 20220801
